FAERS Safety Report 5509823-9 (Version None)
Quarter: 2007Q4

REPORT INFORMATION
  Report Type: 
  Country: None (occurrence: None)
  Receive Date: 20071108
  Receipt Date: 20071030
  Transmission Date: 20080405
  Serious: Yes (Other)
  Sender: FDA-Public Use
  Company Number: US-ASTRAZENECA-2007UW02033

PATIENT
  Age: 16901 Day
  Sex: Female
  Weight: 62.3 kg

DRUGS (5)
  1. SEROQUEL [Suspect]
     Indication: SCHIZOPHRENIA
     Route: 048
     Dates: start: 20001011, end: 20010226
  2. SEROQUEL [Suspect]
     Dosage: 25-400 MG
     Route: 048
     Dates: start: 20010227, end: 20031116
  3. SEROQUEL [Suspect]
     Route: 048
     Dates: start: 20031117, end: 20050701
  4. SEROQUEL [Suspect]
     Route: 048
     Dates: start: 20050823, end: 20060101
  5. ZYPREXA [Concomitant]
     Dates: start: 19990218, end: 20001011

REACTIONS (5)
  - ABDOMINAL PAIN [None]
  - HEPATITIS C [None]
  - OBESITY [None]
  - PANCREATITIS [None]
  - TYPE 2 DIABETES MELLITUS [None]
